FAERS Safety Report 25847143 (Version 2)
Quarter: 2025Q4

REPORT INFORMATION
  Report Type: Spontaneous
  Country: US (occurrence: US)
  Receive Date: 20250925
  Receipt Date: 20251006
  Transmission Date: 20260118
  Serious: Yes (Hospitalization, Other)
  Sender: DR REDDYS
  Company Number: None

PATIENT
  Age: 56 Year
  Sex: Male

DRUGS (2)
  1. CLOZAPINE [Suspect]
     Active Substance: CLOZAPINE
     Indication: Product used for unknown indication
     Dosage: MULTIPLE BOTTLES OF CLOZAPINE 25 MG AND 100 MG TABLETS
     Route: 048
  2. CLOZAPINE [Suspect]
     Active Substance: CLOZAPINE
     Dosage: MULTIPLE BOTTLES OF CLOZAPINE 25 MG AND 100 MG TABLETS
     Route: 048

REACTIONS (6)
  - Mental status changes [Unknown]
  - Hypotension [Unknown]
  - Haemodynamic instability [Unknown]
  - Toxicity to various agents [Unknown]
  - Electrocardiogram QT prolonged [Recovering/Resolving]
  - Intentional overdose [Unknown]
